FAERS Safety Report 20672785 (Version 1)
Quarter: 2022Q2

REPORT INFORMATION
  Report Type: Spontaneous
  Country: US (occurrence: US)
  Receive Date: 20220405
  Receipt Date: 20220405
  Transmission Date: 20220721
  Serious: Yes (Death)
  Sender: FDA-Public Use
  Company Number: US-GW PHARMA-202204USGW01740

PATIENT
  Age: 17 Year
  Sex: Male

DRUGS (1)
  1. EPIDIOLEX [Suspect]
     Active Substance: CANNABIDIOL
     Indication: Seizure
     Dosage: 1600 MILLIGRAM, QD (500 MG IN THE MORNING, 500 MG IN THE AFTERNOON, 600 MG IN THE EVENING)
     Route: 048
     Dates: start: 201906

REACTIONS (2)
  - Death [Fatal]
  - Product use issue [Not Recovered/Not Resolved]

NARRATIVE: CASE EVENT DATE: 20220327
